FAERS Safety Report 8417385 (Version 7)
Quarter: 2013Q1

REPORT INFORMATION
  Report Type: Spontaneous
  Country: US (occurrence: US)
  Receive Date: 20120220
  Receipt Date: 20130114
  Transmission Date: 20140127
  Serious: Yes (Disabling, Other)
  Sender: FDA-Public Use
  Company Number: US-ASTRAZENECA-2011SE25471

PATIENT
  Age: 50 Year
  Sex: Female
  Weight: 81.6 kg

DRUGS (24)
  1. NEXIUM [Suspect]
     Indication: HYPERCHLORHYDRIA
     Route: 048
     Dates: start: 2000
  2. NEXIUM [Suspect]
     Indication: GASTROOESOPHAGEAL REFLUX DISEASE
     Route: 048
     Dates: start: 2000
  3. NEXIUM [Suspect]
     Indication: HYPERCHLORHYDRIA
     Dosage: TWO TIMES A DAY
     Route: 048
  4. NEXIUM [Suspect]
     Indication: GASTROOESOPHAGEAL REFLUX DISEASE
     Dosage: TWO TIMES A DAY
     Route: 048
  5. SEROQUEL [Suspect]
     Route: 048
  6. XANAX [Suspect]
     Indication: GENERALISED ANXIETY DISORDER
     Route: 048
  7. XANAX [Suspect]
     Indication: POST-TRAUMATIC STRESS DISORDER
     Route: 048
  8. XANAX [Suspect]
     Indication: GENERALISED ANXIETY DISORDER
     Route: 048
  9. XANAX [Suspect]
     Indication: POST-TRAUMATIC STRESS DISORDER
     Route: 048
  10. ACCURETIC [Suspect]
     Indication: HYPERTENSION
     Dosage: 20 MG/12.5 MG TWO TIMES A DAY
     Route: 048
  11. PREPARATION-H [Suspect]
     Route: 065
  12. NARDIL [Suspect]
     Indication: DEPRESSION
     Dosage: 15 MG 8 TABLETS PER DAY
     Route: 048
  13. NARDIL [Suspect]
     Indication: SOCIAL PHOBIA
     Dosage: 15 MG 8 TABLETS PER DAY
     Route: 048
  14. CITRUCEL [Concomitant]
  15. MAGNESIUM [Concomitant]
     Route: 048
  16. FISH OIL OTC [Concomitant]
     Indication: CARDIAC DISORDER
     Dosage: THREE TIMES A DAY
     Route: 048
  17. VITAMIN D [Concomitant]
     Dosage: 5000 UNITS ONCE A WEEK
     Route: 048
  18. ESGIC PLUS [Concomitant]
     Indication: HEADACHE
     Dosage: AS REQUIRED
     Route: 048
  19. VENTOLIN INHALER [Concomitant]
     Indication: ASTHMA
     Route: 055
  20. BABY ASPIRIN [Concomitant]
  21. ALLEGRA [Concomitant]
  22. MULTIPLE LAXATIVES [Concomitant]
  23. ACCUPRIL [Concomitant]
  24. POTASSIUM [Concomitant]

REACTIONS (48)
  - Haemorrhage [Unknown]
  - Ulcer haemorrhage [Unknown]
  - Rectal haemorrhage [Recovering/Resolving]
  - Hypertensive crisis [Unknown]
  - Activities of daily living impaired [Unknown]
  - Drug dependence [Unknown]
  - Weight increased [Unknown]
  - Depression [Not Recovered/Not Resolved]
  - Tooth abscess [Unknown]
  - Gastrooesophageal reflux disease [Recovered/Resolved]
  - Burning sensation [Recovered/Resolved]
  - Aphagia [Recovered/Resolved]
  - Nasopharyngitis [Unknown]
  - Ear pain [Unknown]
  - Pain [Recovered/Resolved]
  - Feeling abnormal [Unknown]
  - Eating disorder [Unknown]
  - Anal sphincter atony [Unknown]
  - Haemorrhoids [Unknown]
  - Blood pressure increased [Unknown]
  - Cataract [Unknown]
  - Post-traumatic stress disorder [Unknown]
  - Generalised anxiety disorder [Unknown]
  - Social avoidant behaviour [Unknown]
  - Panic attack [Unknown]
  - Nervousness [Unknown]
  - Vitamin D deficiency [Unknown]
  - Tobacco user [Unknown]
  - Decreased appetite [Unknown]
  - Weight decreased [Unknown]
  - Blood potassium decreased [Unknown]
  - Adverse event [Unknown]
  - Dizziness postural [Recovered/Resolved]
  - Lethargy [Unknown]
  - Dyspepsia [Recovered/Resolved]
  - Blood magnesium decreased [Unknown]
  - Abdominal pain [Recovered/Resolved]
  - Depression [Unknown]
  - Nausea [Recovered/Resolved]
  - Vomiting [Recovered/Resolved]
  - Constipation [Recovered/Resolved]
  - Hypersensitivity [Unknown]
  - Somnolence [Unknown]
  - Off label use [Unknown]
  - Upper respiratory tract infection [Unknown]
  - Oropharyngeal pain [Unknown]
  - Drug ineffective [Unknown]
  - Drug dose omission [Unknown]
